FAERS Safety Report 10870884 (Version 1)
Quarter: 2015Q1

REPORT INFORMATION
  Report Type: Report from Study
  Country: NO (occurrence: NO)
  Receive Date: 20150226
  Receipt Date: 20150226
  Transmission Date: 20150721
  Serious: Yes (Hospitalization, Other)
  Sender: FDA-Public Use
  Company Number: NO-SA-2015SA022046

PATIENT
  Age: 70 Year
  Sex: Female
  Weight: 82.9 kg

DRUGS (7)
  1. KLEXANE [Concomitant]
     Active Substance: ENOXAPARIN
     Indication: EMBOLISM
     Route: 058
     Dates: start: 201307
  2. DOCETAXEL. [Suspect]
     Active Substance: DOCETAXEL
     Indication: NON-SMALL CELL LUNG CANCER
     Route: 042
     Dates: start: 20140904
  3. LIPITOR [Concomitant]
     Active Substance: ATORVASTATIN CALCIUM
     Indication: HYPERCHOLESTEROLAEMIA
     Route: 048
     Dates: start: 201307
  4. PARACET [Concomitant]
     Active Substance: ACETAMINOPHEN
     Indication: BACK PAIN
     Route: 048
     Dates: start: 1994
  5. SOBRIL [Concomitant]
     Active Substance: OXAZEPAM
     Route: 048
     Dates: start: 201306
  6. FUCITHALMIC [Concomitant]
     Active Substance: FUSIDIC ACID
     Indication: EYE INFECTION
     Route: 047
  7. ALBYL-E [Concomitant]
     Active Substance: ASPIRIN\MAGNESIUM OXIDE
     Indication: EMBOLISM
     Route: 048

REACTIONS (2)
  - Urinary tract infection [Recovering/Resolving]
  - Suspected transmission of an infectious agent via product [Unknown]

NARRATIVE: CASE EVENT DATE: 20150122
